FAERS Safety Report 22147039 (Version 1)
Quarter: 2023Q1

REPORT INFORMATION
  Report Type: Report from Study
  Country: IN (occurrence: None)
  Receive Date: 20230328
  Receipt Date: 20230328
  Transmission Date: 20230418
  Serious: Yes (Death)
  Sender: FDA-Public Use
  Company Number: IN-Merck Healthcare KGaA-9392338

PATIENT
  Age: 56 Year
  Sex: Female

DRUGS (1)
  1. BAVENCIO [Suspect]
     Active Substance: AVELUMAB
     Indication: Transitional cell carcinoma
     Route: 042
     Dates: start: 20221220, end: 20230120

REACTIONS (1)
  - Death [Fatal]

NARRATIVE: CASE EVENT DATE: 20230315
